FAERS Safety Report 9888703 (Version 2)
Quarter: 2014Q1

REPORT INFORMATION
  Report Type: Spontaneous
  Country: US (occurrence: US)
  Receive Date: 20140211
  Receipt Date: 20140219
  Transmission Date: 20141002
  Serious: No
  Sender: FDA-Public Use
  Company Number: US-BAXTER-2014BAX006385

PATIENT
  Sex: Male
  Weight: 90.91 kg

DRUGS (1)
  1. DIANEAL PD2 [Suspect]
     Indication: RENAL FAILURE CHRONIC
     Route: 033
     Dates: start: 2012

REACTIONS (1)
  - Blood potassium decreased [Recovering/Resolving]
